FAERS Safety Report 11039466 (Version 5)
Quarter: 2016Q3

REPORT INFORMATION
  Report Type: Spontaneous
  Country: US (occurrence: US)
  Receive Date: 20150416
  Receipt Date: 20160810
  Transmission Date: 20161109
  Serious: Yes (Disabling, Other)
  Sender: FDA-Public Use
  Company Number: US-009507513-1504USA015077

PATIENT
  Sex: Male
  Weight: 186.4 kg

DRUGS (2)
  1. PROPECIA [Suspect]
     Active Substance: FINASTERIDE
     Indication: ANDROGENETIC ALOPECIA
     Dosage: 1 MG, QD
     Route: 048
     Dates: start: 19980701, end: 19990305
  2. DHEA [Suspect]
     Active Substance: PRASTERONE
     Route: 065

REACTIONS (26)
  - Painful ejaculation [Not Recovered/Not Resolved]
  - Penile size reduced [Not Recovered/Not Resolved]
  - Hypogonadism [Unknown]
  - Depression [Not Recovered/Not Resolved]
  - Hypertension [Unknown]
  - Tooth disorder [Unknown]
  - Surgery [Unknown]
  - Hormone level abnormal [Not Recovered/Not Resolved]
  - Gynaecomastia [Unknown]
  - Meniere^s disease [Unknown]
  - Epicondylitis [Unknown]
  - Adverse drug reaction [Recovered/Resolved]
  - Testicular disorder [Not Recovered/Not Resolved]
  - Loss of libido [Not Recovered/Not Resolved]
  - Penis injury [Not Recovered/Not Resolved]
  - Sexual dysfunction [Not Recovered/Not Resolved]
  - Anxiety [Unknown]
  - Brain injury [Not Recovered/Not Resolved]
  - Endocrine disorder [Not Recovered/Not Resolved]
  - Hyperlipidaemia [Unknown]
  - Gastrooesophageal reflux disease [Unknown]
  - Limb injury [Unknown]
  - Abdominal discomfort [Recovered/Resolved]
  - Prostatism [Unknown]
  - Ejaculation disorder [Not Recovered/Not Resolved]
  - Erectile dysfunction [Not Recovered/Not Resolved]

NARRATIVE: CASE EVENT DATE: 1998
